FAERS Safety Report 12569943 (Version 1)
Quarter: 2016Q3

REPORT INFORMATION
  Report Type: Spontaneous
  Country: DE (occurrence: DE)
  Receive Date: 20160719
  Receipt Date: 20160719
  Transmission Date: 20161109
  Serious: No
  Sender: FDA-Public Use
  Company Number: DE-AMGEN-DEUSP2016089458

PATIENT
  Sex: Male

DRUGS (1)
  1. IMLYGIC [Suspect]
     Active Substance: TALIMOGENE LAHERPAREPVEC
     Indication: SKIN LESION
     Dosage: 1 ML, UNK
     Route: 065
     Dates: start: 20160705

REACTIONS (3)
  - Erythema [Unknown]
  - Blister [Unknown]
  - Off label use [Unknown]

NARRATIVE: CASE EVENT DATE: 201607
